FAERS Safety Report 6268791-5 (Version None)
Quarter: 2009Q3

REPORT INFORMATION
  Report Type: 
  Country: None (occurrence: None)
  Receive Date: 20090715
  Receipt Date: 20090708
  Transmission Date: 20100115
  Serious: Yes (Hospitalization, Other)
  Sender: FDA-Public Use
  Company Number: US-GENENTECH-286602

PATIENT
  Sex: Male
  Weight: 56.3 kg

DRUGS (3)
  1. NUTROPIN [Suspect]
     Indication: PRADER-WILLI SYNDROME
     Dosage: 2.5 MG, 6/WEEK
     Route: 058
     Dates: start: 19970501
  2. NUTROPIN [Suspect]
     Indication: GROWTH HORMONE DEFICIENCY
  3. LEVOTHYROXINE SODIUM [Concomitant]
     Dosage: 50 A?G, QD

REACTIONS (3)
  - EATING DISORDER [None]
  - ILEUS [None]
  - VOMITING [None]
